FAERS Safety Report 8552481-X (Version None)
Quarter: 2012Q3

REPORT INFORMATION
  Report Type: 
  Country: None (occurrence: None)
  Receive Date: 20120731
  Receipt Date: 20120720
  Transmission Date: 20120928
  Serious: Yes (Hospitalization)
  Sender: FDA-Public Use
  Company Number: US-BAYER-2011-090977

PATIENT
  Age: 25 Year
  Sex: Female
  Weight: 97.506 kg

DRUGS (16)
  1. YASMIN [Suspect]
     Indication: CONTRACEPTION
     Dates: start: 20031201, end: 20090901
  2. COMBIVENT [Concomitant]
  3. AMBIEN [Concomitant]
     Dosage: 12.5 MG, DAILY
     Route: 048
     Dates: start: 20090907
  4. PHENERGAN HCL [Concomitant]
     Indication: NAUSEA
  5. PHENERGAN HCL [Concomitant]
     Indication: VOMITING
  6. LEXAPRO [Concomitant]
     Indication: DEPRESSION
     Dosage: 30 MG, HS
     Route: 048
     Dates: start: 20090907
  7. MUCINEX [Concomitant]
     Indication: COUGH
  8. NEXIUM [Concomitant]
     Indication: BACK PAIN
     Dosage: UNK
     Route: 048
  9. COLACE [Concomitant]
  10. VICODIN [Concomitant]
  11. DIET CONTROL PILL [Concomitant]
     Dosage: 1 TABLET AT BEDTIME
     Route: 048
     Dates: start: 20090907
  12. AVELOX [Concomitant]
     Dosage: 400 MG, UNK
     Route: 048
  13. DROSPIRENONE AND ETHINYL ESTRADIOL [Suspect]
     Indication: CONTRACEPTION
     Dates: start: 20031201, end: 20090901
  14. LEXAPRO [Concomitant]
     Indication: ANXIETY
  15. LASIX [Concomitant]
     Indication: LYMPHOEDEMA
     Dosage: UNK
     Dates: start: 20090101
  16. CLONIDINE [Concomitant]

REACTIONS (8)
  - EMOTIONAL DISTRESS [None]
  - ANXIETY [None]
  - MENTAL DISORDER [None]
  - INJURY [None]
  - PAIN [None]
  - PSYCHOLOGICAL TRAUMA [None]
  - PULMONARY EMBOLISM [None]
  - DEPRESSION [None]
